FAERS Safety Report 8987476 (Version 39)
Quarter: 2017Q1

REPORT INFORMATION
  Report Type: Report from Study
  Country: CA (occurrence: CA)
  Receive Date: 20121227
  Receipt Date: 20170120
  Transmission Date: 20170429
  Serious: Yes (Disabling, Other)
  Sender: FDA-Public Use
  Company Number: CA-ROCHE-1130239

PATIENT
  Age: 65 Year
  Sex: Female
  Weight: 84 kg

DRUGS (24)
  1. ACTEMRA [Suspect]
     Active Substance: TOCILIZUMAB
     Indication: RHEUMATOID ARTHRITIS
     Route: 058
     Dates: start: 20160614
  2. TYLENOL ARTHRITIS PAIN [Concomitant]
     Active Substance: ACETAMINOPHEN
     Route: 048
     Dates: start: 20100907, end: 20100921
  3. RITUXAN [Suspect]
     Active Substance: RITUXIMAB
     Indication: RHEUMATOID ARTHRITIS
     Route: 042
     Dates: start: 20100907, end: 20100921
  4. FOLIC ACID. [Concomitant]
     Active Substance: FOLIC ACID
  5. OMEGA 3 [Concomitant]
     Active Substance: OMEGA-3 FATTY ACIDS
  6. ACTEMRA [Suspect]
     Active Substance: TOCILIZUMAB
     Route: 042
     Dates: start: 20121221
  7. ACTEMRA [Suspect]
     Active Substance: TOCILIZUMAB
     Route: 042
     Dates: start: 20130319
  8. ACTEMRA [Suspect]
     Active Substance: TOCILIZUMAB
     Route: 042
     Dates: start: 20141022
  9. ACTEMRA [Suspect]
     Active Substance: TOCILIZUMAB
     Route: 042
     Dates: start: 20130122
  10. ACTEMRA [Suspect]
     Active Substance: TOCILIZUMAB
     Route: 058
     Dates: start: 20170118
  11. BENADRYL [Concomitant]
     Active Substance: DIPHENHYDRAMINE HYDROCHLORIDE
     Route: 048
     Dates: start: 20100907, end: 20100921
  12. ACTEMRA [Suspect]
     Active Substance: TOCILIZUMAB
     Route: 042
     Dates: start: 20140725
  13. PRAVASTATIN. [Suspect]
     Active Substance: PRAVASTATIN
     Indication: PRODUCT USED FOR UNKNOWN INDICATION
     Route: 065
  14. PRAVASTATIN. [Suspect]
     Active Substance: PRAVASTATIN
     Route: 065
  15. METHOTREXATE. [Concomitant]
     Active Substance: METHOTREXATE
  16. ACTEMRA [Suspect]
     Active Substance: TOCILIZUMAB
     Indication: RHEUMATOID ARTHRITIS
     Dosage: LAST DOSE ON 15/SEP/2015.
     Route: 042
     Dates: start: 20110519, end: 20120618
  17. LOSEC [Concomitant]
     Active Substance: OMEPRAZOLE
  18. VASOTEC (CANADA) [Concomitant]
  19. SOLU-MEDROL [Concomitant]
     Active Substance: METHYLPREDNISOLONE SODIUM SUCCINATE
     Route: 042
     Dates: start: 20100907, end: 20100921
  20. ASPIRIN. [Concomitant]
     Active Substance: ASPIRIN
  21. BLOCADREN [Concomitant]
     Active Substance: TIMOLOL MALEATE
  22. XANAX [Concomitant]
     Active Substance: ALPRAZOLAM
  23. HYDROCHLOROTHIAZIDE. [Concomitant]
     Active Substance: HYDROCHLOROTHIAZIDE
  24. ACETYLSALICYLIC ACID [Concomitant]
     Active Substance: ASPIRIN

REACTIONS (41)
  - Skin cancer [Unknown]
  - Weight increased [Not Recovered/Not Resolved]
  - Herpes zoster [Unknown]
  - Pneumonia [Recovered/Resolved]
  - Hypotension [Recovered/Resolved]
  - Dyspnoea [Not Recovered/Not Resolved]
  - Heart rate decreased [Unknown]
  - Furuncle [Recovering/Resolving]
  - Bronchitis [Not Recovered/Not Resolved]
  - Heart rate decreased [Not Recovered/Not Resolved]
  - Pneumonia [Recovered/Resolved]
  - Dysuria [Recovered/Resolved]
  - Oxygen saturation decreased [Unknown]
  - Abdominal pain [Not Recovered/Not Resolved]
  - Weight decreased [Unknown]
  - Lung infection [Not Recovered/Not Resolved]
  - Herpes zoster [Recovered/Resolved]
  - Arthralgia [Unknown]
  - Back pain [Unknown]
  - Blood urine present [Recovered/Resolved]
  - Cough [Unknown]
  - Cough [Recovering/Resolving]
  - Throat irritation [Not Recovered/Not Resolved]
  - Arthritis [Unknown]
  - Blindness unilateral [Not Recovered/Not Resolved]
  - Injection site haematoma [Recovering/Resolving]
  - Peripheral swelling [Not Recovered/Not Resolved]
  - Pulmonary oedema [Not Recovered/Not Resolved]
  - Heart valve incompetence [Not Recovered/Not Resolved]
  - Scab [Unknown]
  - Ear infection [Recovered/Resolved]
  - Blood pressure increased [Recovered/Resolved]
  - Eye infection [Recovering/Resolving]
  - Urinary tract infection [Recovering/Resolving]
  - Wheezing [Unknown]
  - Bronchitis [Not Recovered/Not Resolved]
  - Bite [Recovered/Resolved]
  - Sinusitis [Recovered/Resolved]
  - Abdominal mass [Recovering/Resolving]
  - Infusion related reaction [Unknown]
  - Clostridium difficile colitis [Recovered/Resolved]

NARRATIVE: CASE EVENT DATE: 201206
